FAERS Safety Report 5215227-9 (Version None)
Quarter: 2007Q1

REPORT INFORMATION
  Report Type: 
  Country: None (occurrence: None)
  Receive Date: 20070122
  Receipt Date: 20070110
  Transmission Date: 20070707
  Serious: Yes (Hospitalization)
  Sender: FDA-Public Use
  Company Number: JP-PFIZER INC-2007004913

PATIENT
  Age: 69 Year
  Sex: Male

DRUGS (14)
  1. MIGLITOL TABLET [Suspect]
     Indication: DIABETES MELLITUS
     Route: 048
     Dates: start: 20061106, end: 20061219
  2. AMARYL [Concomitant]
     Indication: DIABETES MELLITUS
     Dosage: DAILY DOSE:3MG
     Route: 048
     Dates: start: 20061106, end: 20061219
  3. ALL OTHER THERAPEUTIC PRODUCTS [Concomitant]
     Route: 048
  4. PANALDINE [Concomitant]
     Route: 048
  5. ASPIRIN [Concomitant]
     Route: 048
  6. VALSARTAN [Concomitant]
     Route: 048
  7. NORVASC [Concomitant]
     Route: 048
  8. LANIRAPID [Concomitant]
     Route: 048
  9. ALDACTAZIDE-A [Concomitant]
     Route: 048
  10. LASIX [Concomitant]
     Route: 048
  11. THEO-DUR [Concomitant]
     Route: 048
  12. ACARDI [Concomitant]
     Route: 048
  13. ALL OTHER THERAPEUTIC PRODUCTS [Concomitant]
     Route: 048
  14. BENZBROMARONE [Concomitant]
     Route: 048

REACTIONS (1)
  - HYPOGLYCAEMIA [None]
